FAERS Safety Report 23455212 (Version 2)
Quarter: 2024Q1

REPORT INFORMATION
  Report Type: Report from Study
  Country: PT (occurrence: PT)
  Receive Date: 20240130
  Receipt Date: 20240205
  Transmission Date: 20240410
  Serious: Yes (Other)
  Sender: FDA-Public Use
  Company Number: PT-002147023-NVSC2024PT018404

PATIENT
  Age: 68 Year
  Sex: Male

DRUGS (2)
  1. TABRECTA [Suspect]
     Active Substance: CAPMATINIB
     Indication: Product used for unknown indication
     Dosage: 400 MG
     Route: 065
     Dates: start: 20191224
  2. TABRECTA [Suspect]
     Active Substance: CAPMATINIB
     Dosage: 300 UNK
     Route: 065
     Dates: start: 2020

REACTIONS (1)
  - Oesophageal carcinoma [Unknown]

NARRATIVE: CASE EVENT DATE: 20240125
